FAERS Safety Report 13599293 (Version 1)
Quarter: 2017Q2

REPORT INFORMATION
  Report Type: Spontaneous
  Country: JP (occurrence: JP)
  Receive Date: 20170531
  Receipt Date: 20170531
  Transmission Date: 20170830
  Serious: Yes (Death)
  Sender: FDA-Public Use
  Company Number: JP-MALLINCKRODT-T201702248

PATIENT
  Age: 54 Year
  Sex: Male

DRUGS (4)
  1. RINDERON V [Concomitant]
     Active Substance: BETAMETHASONE VALERATE
     Indication: ANALGESIC THERAPY
     Dosage: 2 MG
     Route: 048
     Dates: end: 20140502
  2. METHADONE [Suspect]
     Active Substance: METHADONE HYDROCHLORIDE
     Indication: CANCER PAIN
     Dosage: (25 MG DAILY DOSE)
     Route: 048
     Dates: start: 20140423, end: 20140427
  3. METHADONE [Suspect]
     Active Substance: METHADONE HYDROCHLORIDE
     Dosage: 10 MG (30 MG DAILY DOSE)
     Route: 048
     Dates: start: 20140428, end: 20140502
  4. LYRICA [Concomitant]
     Active Substance: PREGABALIN
     Indication: ANALGESIC THERAPY
     Dosage: 75 MG
     Route: 048
     Dates: end: 20140502

REACTIONS (1)
  - Malignant neoplasm of renal pelvis [Fatal]

NARRATIVE: CASE EVENT DATE: 20140502
